FAERS Safety Report 8585231 (Version 2)
Quarter: 2013Q2

REPORT INFORMATION
  Report Type: Report from Study
  Country: CA (occurrence: CA)
  Receive Date: 20120530
  Receipt Date: 20130509
  Transmission Date: 20140414
  Serious: Yes (Hospitalization, Other)
  Sender: FDA-Public Use
  Company Number: CA-BRISTOL-MYERS SQUIBB COMPANY-16618662

PATIENT
  Age: 52 Year
  Sex: Female

DRUGS (6)
  1. ORENCIA [Suspect]
     Indication: RHEUMATOID ARTHRITIS
     Dosage: NO OF INF:20?LAST INF:2MAY12?LOT#2K74506,JUL15
     Route: 042
     Dates: start: 20101119
  2. METHOTREXATE [Concomitant]
  3. ZOPICLONE [Concomitant]
  4. SEROQUEL [Concomitant]
  5. KETOPROFEN [Concomitant]
  6. CELEXA [Concomitant]

REACTIONS (3)
  - Myocardial infarction [Unknown]
  - Coronary artery disease [Unknown]
  - Vomiting [Not Recovered/Not Resolved]
